FAERS Safety Report 8580783-X (Version None)
Quarter: 2012Q3

REPORT INFORMATION
  Report Type: 
  Country: None (occurrence: None)
  Receive Date: 20120809
  Receipt Date: 20120801
  Transmission Date: 20120928
  Serious: No
  Sender: FDA-Public Use
  Company Number: US-BIOGENIDEC-2012BI028879

PATIENT
  Age: 42 Year
  Sex: Female

DRUGS (4)
  1. AVONEX [Suspect]
     Route: 030
     Dates: start: 20010501, end: 20110501
  2. AVONEX [Suspect]
     Indication: MULTIPLE SCLEROSIS
     Route: 030
  3. AVONEX [Suspect]
     Route: 030
     Dates: start: 20010405, end: 20011101
  4. AVONEX [Suspect]
     Route: 030
     Dates: start: 20030917, end: 20110520

REACTIONS (2)
  - CYST [None]
  - WHITE BLOOD CELL COUNT INCREASED [None]
